FAERS Safety Report 7264736-X (Version None)
Quarter: 2011Q1

REPORT INFORMATION
  Report Type: 
  Country: None (occurrence: None)
  Receive Date: 20110131
  Receipt Date: 20110126
  Transmission Date: 20110831
  Serious: Yes (Death)
  Sender: FDA-Public Use
  Company Number: PHHY2011SI00660

PATIENT
  Sex: Male

DRUGS (1)
  1. FLUVASTATIN SODIUM [Suspect]
     Dosage: UNK
     Route: 048
     Dates: start: 20071223

REACTIONS (1)
  - DEATH [None]
